FAERS Safety Report 10222031 (Version 2)
Quarter: 2014Q2

REPORT INFORMATION
  Report Type: Report from Study
  Country: GB (occurrence: GB)
  Receive Date: 20140606
  Receipt Date: 20140606
  Transmission Date: 20141212
  Serious: Yes (Life-Threatening, Hospitalization)
  Sender: FDA-Public Use
  Company Number: GB-BIOMARINP-000150

PATIENT
  Age: 15 Year
  Sex: Male
  Weight: 24 kg

DRUGS (9)
  1. NAGLAZYME [Suspect]
     Indication: MUCOPOLYSACCHARIDOSIS VI
     Dosage: 15MG,QW
     Route: 041
     Dates: start: 20030915
  2. ENALAPRIL [Concomitant]
     Indication: PRODUCT USED FOR UNKNOWN INDICATION
  3. FUROSEMIDE [Concomitant]
     Indication: PRODUCT USED FOR UNKNOWN INDICATION
  4. LIGNOCAINE                         /00033401/ [Concomitant]
     Indication: VOCAL CORD DISORDER
     Dosage: UNK
     Dates: start: 20081212, end: 20081212
  5. REMIFENTANIL [Concomitant]
     Indication: ANAESTHESIA
     Dosage: UNK
     Dates: start: 20081212, end: 20081212
  6. EPHEDRINE [Concomitant]
     Indication: PROPHYLAXIS
     Dosage: UNK
     Dates: start: 20081212, end: 20081212
  7. MORPHINE [Concomitant]
     Indication: ANALGESIC THERAPY
     Dosage: UNK
     Dates: start: 20081212, end: 20081212
  8. HARTMANN^S SOLUTION [Concomitant]
     Indication: ELECTROLYTE IMBALANCE
     Dosage: UNK
     Dates: start: 20081212, end: 20081212
  9. GELOFUSIN [Concomitant]
     Indication: VOLUME BLOOD
     Dosage: UNK
     Dates: start: 20081212, end: 20081212

REACTIONS (2)
  - Joint range of motion decreased [Recovered/Resolved]
  - Tracheostomy [Recovered/Resolved]
